FAERS Safety Report 9793144 (Version 1)
Quarter: 2013Q4

REPORT INFORMATION
  Report Type: Spontaneous
  Country: CH (occurrence: None)
  Receive Date: 20131230
  Receipt Date: 20131230
  Transmission Date: 20140711
  Serious: Yes (Hospitalization)
  Sender: FDA-Public Use
  Company Number: 20130743

PATIENT
  Age: 70 Year
  Sex: Male

DRUGS (1)
  1. FERINJECT [Suspect]
     Indication: IRON DEFICIENCY ANAEMIA
     Route: 041

REACTIONS (1)
  - Acute coronary syndrome [None]
